FAERS Safety Report 11488252 (Version 2)
Quarter: 2015Q3

REPORT INFORMATION
  Report Type: Report from Study
  Country: US (occurrence: US)
  Receive Date: 20150909
  Receipt Date: 20150909
  Transmission Date: 20151125
  Serious: Yes (Other)
  Sender: FDA-Public Use
  Company Number: US-AMGEN-USASL2015090718

PATIENT
  Sex: Female

DRUGS (1)
  1. ENBREL [Suspect]
     Active Substance: ETANERCEPT
     Indication: PSORIATIC ARTHROPATHY
     Dosage: 50 MG, QWK
     Route: 065
     Dates: start: 2014, end: 201504

REACTIONS (6)
  - Laryngitis [Unknown]
  - Nasopharyngitis [Unknown]
  - Squamous cell carcinoma of skin [Unknown]
  - Bronchitis bacterial [Unknown]
  - Basal cell carcinoma [Unknown]
  - Bronchitis fungal [Unknown]

NARRATIVE: CASE EVENT DATE: 2014
